FAERS Safety Report 17128770 (Version 1)
Quarter: 2019Q4

REPORT INFORMATION
  Report Type: Spontaneous
  Country: AR (occurrence: AR)
  Receive Date: 20191209
  Receipt Date: 20191209
  Transmission Date: 20200122
  Serious: Yes (Other)
  Sender: FDA-Public Use
  Company Number: AR-PFIZER INC-2019525978

PATIENT
  Age: 17 Year
  Sex: Male

DRUGS (1)
  1. GENOTROPIN [Suspect]
     Active Substance: SOMATROPIN
     Indication: GROWTH HORMONE DEFICIENCY
     Dosage: 0.6.-1MG 7 TIMES PER WEEK
     Dates: start: 20110613

REACTIONS (4)
  - Hyperthyroidism [Unknown]
  - Glucose tolerance impaired [Unknown]
  - Device issue [Unknown]
  - Drug ineffective [Unknown]
